FAERS Safety Report 21051925 (Version 1)
Quarter: 2022Q3

REPORT INFORMATION
  Report Type: Spontaneous
  Country: US (occurrence: US)
  Receive Date: 20220707
  Receipt Date: 20220707
  Transmission Date: 20221027
  Serious: No
  Sender: FDA-Public Use
  Company Number: US-MankindUS-000025

PATIENT
  Sex: Male

DRUGS (1)
  1. FENOFIBRATE [Suspect]
     Active Substance: FENOFIBRATE
     Indication: Product used for unknown indication
     Dosage: STRENGTH:54MG, 1/DAY
     Dates: start: 20210909

REACTIONS (1)
  - Myalgia [Not Recovered/Not Resolved]
